FAERS Safety Report 15121425 (Version 2)
Quarter: 2018Q3

REPORT INFORMATION
  Report Type: Spontaneous
  Country: US (occurrence: US)
  Receive Date: 20180709
  Receipt Date: 20180713
  Transmission Date: 20181010
  Serious: Yes (Hospitalization, Other)
  Sender: FDA-Public Use
  Company Number: US-PFIZER INC-2018276147

PATIENT
  Age: 28 Year
  Sex: Male

DRUGS (10)
  1. DEXAMETHASONE. [Suspect]
     Active Substance: DEXAMETHASONE
     Indication: T-CELL LYMPHOMA
     Dosage: UNK, CYCLIC (TWO CYCLES OF CHEMOTHERAPY)
  2. CYCLOSPORINE?A [Suspect]
     Active Substance: CYCLOSPORINE
     Indication: PROPHYLAXIS AGAINST GRAFT VERSUS HOST DISEASE
     Dosage: 550 MG, 1X/DAY
     Route: 048
  3. CYCLOPHOSPHAMIDE. [Suspect]
     Active Substance: CYCLOPHOSPHAMIDE
     Indication: T-CELL LYMPHOMA
     Dosage: UNK, CYCLIC (FOUR CYCLES OF CHEMOTHERAPY)
  4. ONCOVIN [Suspect]
     Active Substance: VINCRISTINE SULFATE
     Indication: T-CELL LYMPHOMA
     Dosage: UNK, CYCLIC (FOUR CYCLES OF CHEMOTHERAPY)
  5. CISPLATIN. [Suspect]
     Active Substance: CISPLATIN
     Indication: T-CELL LYMPHOMA
     Dosage: UNK, CYCLIC (TWO CYCLES OF CHEMOTHERAPY)
  6. PREDNISONE. [Suspect]
     Active Substance: PREDNISONE
     Indication: T-CELL LYMPHOMA
     Dosage: UNK, CYCLIC (FOUR CYCLES OF CHEMOTHERAPY)
  7. IMMUNOGLOBULIN (IMMUNOGLOBULIN HUMAN NORMAL) [Concomitant]
     Active Substance: HUMAN IMMUNOGLOBULIN G
     Indication: PROPHYLAXIS AGAINST GRAFT VERSUS HOST DISEASE
     Dosage: MONTHLY
     Route: 041
  8. DOXORUBICIN HCL [Suspect]
     Active Substance: DOXORUBICIN HYDROCHLORIDE
     Indication: T-CELL LYMPHOMA
     Dosage: UNK, CYCLIC (FOUR CYCLES OF CHEMOTHERAPY)
  9. CYTARABINE. [Suspect]
     Active Substance: CYTARABINE
     Indication: T-CELL LYMPHOMA
     Dosage: UNK, CYCLIC (HIGH DOSE; TWO CYCLES OF CHEMOTHERAPY)
  10. CYCLOPHOSPHAMIDE. [Suspect]
     Active Substance: CYCLOPHOSPHAMIDE
     Indication: BONE MARROW CONDITIONING REGIMEN

REACTIONS (8)
  - Neurotoxicity [Recovering/Resolving]
  - Epilepsy [Recovered/Resolved]
  - Sinusitis bacterial [Recovered/Resolved]
  - Nasal herpes [Recovering/Resolving]
  - Posterior reversible encephalopathy syndrome [Recovering/Resolving]
  - Oral herpes [Recovering/Resolving]
  - Hippocampal sclerosis [Recovering/Resolving]
  - Blindness cortical [Recovering/Resolving]
